FAERS Safety Report 6204947-5 (Version None)
Quarter: 2009Q2

REPORT INFORMATION
  Report Type: 
  Country: None (occurrence: None)
  Receive Date: 20090527
  Receipt Date: 20090306
  Transmission Date: 20091009
  Serious: No
  Sender: FDA-Public Use
  Company Number: US-ABBOTT-08P-163-0470103-00

PATIENT
  Sex: Male

DRUGS (8)
  1. SIMCOR [Suspect]
     Indication: BLOOD CHOLESTEROL INCREASED
     Dosage: TWO DAILY AT BEDTIME
     Route: 048
     Dates: start: 20080801
  2. MULTIPLE VITAMINS [Concomitant]
     Indication: DRUG USE FOR UNKNOWN INDICATION
  3. ASPIRIN [Concomitant]
     Indication: DRUG USE FOR UNKNOWN INDICATION
  4. CLARITIN [Concomitant]
     Indication: DRUG USE FOR UNKNOWN INDICATION
  5. BENICAR [Concomitant]
     Indication: DRUG USE FOR UNKNOWN INDICATION
  6. BENICAR [Concomitant]
     Dosage: ONE HALF TABLET DAILY
  7. ATENOLOL [Concomitant]
     Indication: DRUG USE FOR UNKNOWN INDICATION
  8. FISH OIL [Concomitant]
     Indication: DRUG USE FOR UNKNOWN INDICATION

REACTIONS (2)
  - ABDOMINAL DISCOMFORT [None]
  - DIZZINESS [None]
